FAERS Safety Report 7811037-4 (Version None)
Quarter: 2012Q1

REPORT INFORMATION
  Report Type: 
  Country: None (occurrence: None)
  Receive Date: 20111011
  Receipt Date: 20110927
  Transmission Date: 20120608
  Serious: Yes (Other)
  Sender: FDA-Public Use
  Company Number: DSJ-2011-21234

PATIENT
  Age: 80 Year
  Sex: Male

DRUGS (7)
  1. TRIMETAZIDINE [Concomitant]
  2. AMLODIPINE BESYLATE AND OLMESARTAN MEDOXOMIL [Suspect]
     Indication: HYPERTENSION
     Dosage: 120/15 MG (1 D), PER ORAL : 160/20 MG (1 D), PER ORAL : 40/5 MG (1 IN 1 D), PER ORAL
     Route: 048
     Dates: start: 20110801, end: 20110101
  3. AMLODIPINE BESYLATE AND OLMESARTAN MEDOXOMIL [Suspect]
     Indication: HYPERTENSION
     Dosage: 120/15 MG (1 D), PER ORAL : 160/20 MG (1 D), PER ORAL : 40/5 MG (1 IN 1 D), PER ORAL
     Route: 048
     Dates: start: 20110101, end: 20110801
  4. AMLODIPINE BESYLATE AND OLMESARTAN MEDOXOMIL [Suspect]
     Indication: HYPERTENSION
     Dosage: 120/15 MG (1 D), PER ORAL : 160/20 MG (1 D), PER ORAL : 40/5 MG (1 IN 1 D), PER ORAL
     Route: 048
     Dates: start: 20110101
  5. DILTIAZEM HCL [Concomitant]
  6. CHEMOTHERAPY [Suspect]
     Indication: GASTROINTESTINAL CARCINOMA
     Dosage: (2 IN 1 M)
     Dates: start: 20110701
  7. ATORVASTATIN [Concomitant]

REACTIONS (5)
  - BLOOD PRESSURE ABNORMAL [None]
  - DRUG ADMINISTRATION ERROR [None]
  - HEADACHE [None]
  - GASTROINTESTINAL CARCINOMA [None]
  - OVERDOSE [None]
